FAERS Safety Report 26000014 (Version 1)
Quarter: 2025Q4

REPORT INFORMATION
  Report Type: Spontaneous
  Country: AU (occurrence: AU)
  Receive Date: 20251105
  Receipt Date: 20251105
  Transmission Date: 20260118
  Serious: Yes (Other)
  Sender: RANBAXY
  Company Number: AU-SUN PHARMACEUTICAL INDUSTRIES INC-2025R1-534732

PATIENT
  Age: 80 Year
  Sex: Male

DRUGS (1)
  1. DOXORUBICIN [Suspect]
     Active Substance: DOXORUBICIN
     Indication: Dedifferentiated liposarcoma
     Route: 065

REACTIONS (2)
  - Dedifferentiated liposarcoma [Unknown]
  - Malignant neoplasm progression [Unknown]
